FAERS Safety Report 6301684-3 (Version None)
Quarter: 2009Q3

REPORT INFORMATION
  Report Type: 
  Country: None (occurrence: None)
  Receive Date: 20090807
  Receipt Date: 20090805
  Transmission Date: 20100115
  Serious: Yes (Death, Other)
  Sender: FDA-Public Use
  Company Number: PHHY2009BR32821

PATIENT
  Sex: Male
  Weight: 62 kg

DRUGS (8)
  1. MYFORTIC [Suspect]
     Indication: PROPHYLAXIS AGAINST TRANSPLANT REJECTION
     Dosage: 3 TABLETS DAILY
     Route: 048
  2. ENALAPRIL MALEATE [Concomitant]
     Indication: BLOOD PRESSURE INCREASED
     Dosage: 2 TABLETS DAILY
     Route: 048
  3. RENAGEL [Concomitant]
     Dosage: 3 TABLETS DAILY
     Route: 048
  4. ATENOLOL [Concomitant]
     Indication: BLOOD PRESSURE INCREASED
     Dosage: 2 TABLETS DAILY
     Route: 048
  5. LOSARTAN POTASSIUM [Concomitant]
     Indication: BLOOD PRESSURE INCREASED
     Dosage: 2 TABLETS DAILY
     Route: 048
  6. PREDNISONE [Concomitant]
     Dosage: 2 TABLETS DAILY
     Route: 048
  7. FUROSEMIDE [Concomitant]
     Indication: DIURETIC THERAPY
     Dosage: 1 TABLET DAILY
     Route: 048
     Dates: end: 20090201
  8. OMEPRAZOL [Concomitant]
     Dosage: 2 TABLETS DAILY
     Route: 048

REACTIONS (4)
  - COUGH [None]
  - INFARCTION [None]
  - MALAISE [None]
  - SYNCOPE [None]
